FAERS Safety Report 20778657 (Version 6)
Quarter: 2022Q2

REPORT INFORMATION
  Report Type: Report from Study
  Country: US (occurrence: US)
  Receive Date: 20220503
  Receipt Date: 20220524
  Transmission Date: 20220721
  Serious: No
  Sender: FDA-Public Use
  Company Number: US-NOVARTISTESTPH-NVSC2022US100958

PATIENT
  Sex: Male

DRUGS (2)
  1. ENTRESTO [Suspect]
     Active Substance: SACUBITRIL\VALSARTAN
     Indication: Product used for unknown indication
     Dosage: 1 DOSAGE FORM, BID  (24/26 MG)
     Route: 048
     Dates: start: 20140101, end: 20220509
  2. ENTRESTO [Suspect]
     Active Substance: SACUBITRIL\VALSARTAN
     Dosage: UNK
     Route: 065
     Dates: start: 20140101, end: 20220509

REACTIONS (5)
  - Atrioventricular block [Unknown]
  - Back pain [Unknown]
  - Blood pressure decreased [Unknown]
  - Blood creatine increased [Unknown]
  - Dizziness [Unknown]
